FAERS Safety Report 13621863 (Version 1)
Quarter: 2017Q2

REPORT INFORMATION
  Report Type: Spontaneous
  Country: US (occurrence: US)
  Receive Date: 20170607
  Receipt Date: 20170607
  Transmission Date: 20170830
  Serious: No
  Sender: FDA-Public Use
  Company Number: US-ROCHE-1876505

PATIENT
  Sex: Female

DRUGS (1)
  1. XELODA [Suspect]
     Active Substance: CAPECITABINE
     Indication: NEOPLASM
     Dosage: TAKE ON DAYS 1-14 OF A 21 DAY CYCLE
     Route: 048
     Dates: start: 20161221

REACTIONS (1)
  - Nausea [Unknown]
